FAERS Safety Report 5622187-5 (Version None)
Quarter: 2008Q1

REPORT INFORMATION
  Report Type: 
  Country: None (occurrence: None)
  Receive Date: 20080211
  Receipt Date: 20080201
  Transmission Date: 20080703
  Serious: Yes (Other)
  Sender: FDA-Public Use
  Company Number: NL-PURDUE-USA_2008_0031402

PATIENT

DRUGS (3)
  1. MORPHINE SULFATE [Suspect]
     Indication: PAIN
     Dosage: 5000 MCG/KG, UNK
     Route: 042
  2. PHENOBARBITAL TAB [Concomitant]
     Indication: CONVULSION NEONATAL
     Dosage: 20 MG/KG, UNK
  3. ACETAMINOPHEN [Concomitant]
     Indication: PAIN
     Route: 048

REACTIONS (7)
  - ACCIDENTAL OVERDOSE [None]
  - ELECTROENCEPHALOGRAM ABNORMAL [None]
  - HYPOTONIA NEONATAL [None]
  - INFANTILE APNOEIC ATTACK [None]
  - MIOSIS [None]
  - NEONATAL RESPIRATORY DEPRESSION [None]
  - SEDATION [None]
